FAERS Safety Report 15550999 (Version 2)
Quarter: 2019Q1

REPORT INFORMATION
  Report Type: Other
  Country: US (occurrence: US)
  Receive Date: 20181025
  Receipt Date: 20190118
  Transmission Date: 20190417
  Serious: Yes (Death)
  Sender: FDA-Public Use
  Company Number: US-INTERCEPT-PMOCA2018001669

PATIENT

DRUGS (1)
  1. OCALIVA [Suspect]
     Active Substance: OBETICHOLIC ACID
     Indication: PRIMARY BILIARY CHOLANGITIS
     Dosage: 5 MG, QW
     Route: 048
     Dates: start: 201808, end: 20180904

REACTIONS (3)
  - Hepatic failure [Fatal]
  - Drug ineffective [Unknown]
  - Peritonitis bacterial [Fatal]

NARRATIVE: CASE EVENT DATE: 2018
